FAERS Safety Report 21924858 (Version 1)
Quarter: 2023Q1

REPORT INFORMATION
  Report Type: Spontaneous
  Country: US (occurrence: None)
  Receive Date: 20230127
  Receipt Date: 20230127
  Transmission Date: 20230417
  Serious: Yes (Other)
  Sender: FDA-Public Use
  Company Number: None

PATIENT
  Sex: Male

DRUGS (1)
  1. HUMIRA [Suspect]
     Active Substance: ADALIMUMAB
     Indication: Rheumatoid arthritis
     Dosage: 40MG/0.4ML SUBCUTANEOUS??INJECT 1 PEN (0.4 ML) UNDER THE SKIN EVERY 2 WEEKS IN THE ABDOMEN OR THIGH
     Route: 058
     Dates: start: 20191105

REACTIONS (2)
  - Therapy interrupted [None]
  - Surgery [None]
